FAERS Safety Report 7297830-8 (Version None)
Quarter: 2011Q1

REPORT INFORMATION
  Report Type: 
  Country: None (occurrence: None)
  Receive Date: 20110217
  Receipt Date: 20110203
  Transmission Date: 20110831
  Serious: Yes (Hospitalization)
  Sender: FDA-Public Use
  Company Number: GB-RANBAXY-2010RR-35306

PATIENT
  Age: 60 Year
  Sex: Male
  Weight: 65 kg

DRUGS (12)
  1. MELOXICAM [Concomitant]
     Dosage: 7.5 MG, BID
     Dates: start: 20070914
  2. NICOTINE [Concomitant]
     Dosage: 10 MG, UNK
     Route: 055
     Dates: start: 20100429
  3. CO-DYDRAMOL [Concomitant]
     Indication: PAIN
     Dosage: UNK
     Dates: start: 20070221
  4. FLIXONASE AQUEOUS [Concomitant]
     Dosage: 1 DF, UNK
     Dates: start: 20021028
  5. NICORETTE [Concomitant]
     Dosage: 10 MG, UNK
     Route: 062
     Dates: start: 20100429
  6. PROPRANOLOL HYDROCHLORIDE [Concomitant]
     Dosage: 80 MG, QD
     Dates: start: 20070816
  7. SALAMOL [Concomitant]
     Dosage: 100 UG, UNK
     Route: 055
     Dates: start: 20051026
  8. ALUPENT [Suspect]
     Indication: LOWER RESPIRATORY TRACT INFECTION
     Dosage: 20 MG, TID
     Route: 048
     Dates: start: 20100427, end: 20100430
  9. PIRITON [Concomitant]
     Dosage: 4 MG, PRN
     Dates: start: 20100520
  10. AMOXICILLIN [Suspect]
     Indication: LOWER RESPIRATORY TRACT INFECTION
     Dosage: 500 MG, UNK
  11. PANTOPRAZOLE [Concomitant]
     Dosage: 20 MG, BID
     Dates: start: 20050527
  12. AMITRIPTYLINE HYDROCHLORIDE [Concomitant]
     Dosage: 50 MG, BID
     Dates: start: 20090105

REACTIONS (4)
  - BLISTER [None]
  - VISUAL IMPAIRMENT [None]
  - HYPERSENSITIVITY [None]
  - DERMATITIS ALLERGIC [None]
